FAERS Safety Report 12955878 (Version 1)
Quarter: 2016Q4

REPORT INFORMATION
  Report Type: Spontaneous
  Country: ES (occurrence: ES)
  Receive Date: 20161118
  Receipt Date: 20161118
  Transmission Date: 20170207
  Serious: Yes (Other)
  Sender: FDA-Public Use
  Company Number: ES-PFIZER INC-2016532008

PATIENT
  Age: 76 Year
  Sex: Male
  Weight: 69 kg

DRUGS (2)
  1. NOLOTIL /06276702/ [Suspect]
     Active Substance: METAMIZOLE MAGNESIUM
     Indication: TOOTHACHE
     Dosage: 575 MG, 3X/DAY
     Route: 048
     Dates: start: 20161104
  2. ZITROMAX [Suspect]
     Active Substance: AZITHROMYCIN
     Indication: TOOTHACHE
     Dosage: 500 MG, 1X/DAY
     Route: 048
     Dates: start: 20161102, end: 20161104

REACTIONS (3)
  - Angioedema [Unknown]
  - Erythema [Unknown]
  - Erythema [None]

NARRATIVE: CASE EVENT DATE: 20161107
